FAERS Safety Report 18570062 (Version 1)
Quarter: 2020Q4

REPORT INFORMATION
  Report Type: Spontaneous
  Country: US (occurrence: US)
  Receive Date: 20201202
  Receipt Date: 20201202
  Transmission Date: 20210114
  Serious: Yes (Hospitalization, Other)
  Sender: FDA-Public Use
  Company Number: None

PATIENT
  Age: 72 Year
  Sex: Female

DRUGS (2)
  1. BEVACIZUMAB. [Suspect]
     Active Substance: BEVACIZUMAB
  2. FLEXISEAL FECAL MANAGEMENT SYSTEM [Suspect]
     Active Substance: DEVICE

REACTIONS (3)
  - Female genital tract fistula [None]
  - Complication associated with device [None]
  - Rectourethral fistula [None]
